FAERS Safety Report 7049479-X (Version None)
Quarter: 2010Q4

REPORT INFORMATION
  Report Type: 
  Country: None (occurrence: None)
  Receive Date: 20101018
  Receipt Date: 20101012
  Transmission Date: 20110411
  Serious: Yes (Other)
  Sender: FDA-Public Use
  Company Number: US-PFIZER INC-2010130036

PATIENT
  Sex: Female

DRUGS (2)
  1. CELEBREX [Suspect]
     Indication: OSTEOARTHRITIS
     Dosage: 100 MG, UNK
  2. CELEBREX [Suspect]
     Dosage: 200 MG, UNK

REACTIONS (3)
  - DRUG INEFFECTIVE [None]
  - KNEE ARTHROPLASTY [None]
  - PAIN [None]
